FAERS Safety Report 6360973-7 (Version None)
Quarter: 2009Q3

REPORT INFORMATION
  Report Type: 
  Country: None (occurrence: None)
  Receive Date: 20090918
  Receipt Date: 20090916
  Transmission Date: 20100115
  Serious: Yes (Other)
  Sender: FDA-Public Use
  Company Number: FR-BRISTOL-MYERS SQUIBB COMPANY-14782510

PATIENT
  Age: 55 Year
  Sex: Male
  Weight: 98 kg

DRUGS (1)
  1. ORENCIA [Suspect]
     Dosage: RECEIVED ON 08JUN09.
     Dates: start: 20090203, end: 20090608

REACTIONS (7)
  - AMNESIA [None]
  - APHASIA [None]
  - ASTHENIA [None]
  - DELIRIUM [None]
  - DEPRESSED LEVEL OF CONSCIOUSNESS [None]
  - HALLUCINATION [None]
  - HYPOGAMMAGLOBULINAEMIA [None]
